FAERS Safety Report 18229389 (Version 1)
Quarter: 2020Q3

REPORT INFORMATION
  Report Type: Spontaneous
  Country: DK (occurrence: DK)
  Receive Date: 20200903
  Receipt Date: 20200903
  Transmission Date: 20201103
  Serious: Yes (Other)
  Sender: FDA-Public Use
  Company Number: DK-MYLANLABS-2020M1075377

PATIENT
  Age: 24 Year
  Sex: Female

DRUGS (3)
  1. ZOPICLONE [Suspect]
     Active Substance: ZOPICLONE
     Indication: BIPOLAR II DISORDER
     Dosage: UNK, DOSE AND STRENGTH UNKNOWN
     Dates: start: 2017
  2. OXAPAX [Suspect]
     Active Substance: OXAZEPAM
     Indication: BIPOLAR II DISORDER
     Dosage: UNK, DOSE AND STRENGTH UNKNOWN
     Dates: start: 2017
  3. QUETIAPINE. [Suspect]
     Active Substance: QUETIAPINE
     Indication: BIPOLAR II DISORDER
     Dosage: UNK, DOSE AND STRENGTH UNKNOWN

REACTIONS (1)
  - Psychotic symptom [Recovered/Resolved]
